FAERS Safety Report 18635178 (Version 1)
Quarter: 2020Q4

REPORT INFORMATION
  Report Type: Spontaneous
  Country: US (occurrence: US)
  Receive Date: 20201218
  Receipt Date: 20201218
  Transmission Date: 20210114
  Serious: No
  Sender: FDA-Public Use
  Company Number: US-LUPIN PHARMACEUTICALS INC.-2020-05480

PATIENT
  Age: 20 Year
  Sex: Female

DRUGS (2)
  1. MINOCYCLINE [Suspect]
     Active Substance: MINOCYCLINE HYDROCHLORIDE
     Indication: CYSTIC FIBROSIS
     Dosage: UNK
     Route: 048
  2. DOXYCYCLINE. [Concomitant]
     Active Substance: DOXYCYCLINE
     Indication: CYSTIC FIBROSIS
     Dosage: UNK
     Route: 048

REACTIONS (2)
  - Rash maculo-papular [Unknown]
  - Rash erythematous [Unknown]
